FAERS Safety Report 25359085 (Version 1)
Quarter: 2025Q2

REPORT INFORMATION
  Report Type: Spontaneous
  Country: US (occurrence: US)
  Receive Date: 20250526
  Receipt Date: 20250526
  Transmission Date: 20250717
  Serious: No
  Sender: MALLINCKRODT
  Company Number: US-MALLINCKRODT-MNK202502830

PATIENT
  Sex: Male

DRUGS (8)
  1. CORTICOTROPIN [Suspect]
     Active Substance: CORTICOTROPIN
     Indication: Crystal arthropathy
     Route: 058
     Dates: start: 20250429
  2. ALLOPURINOL [Concomitant]
     Active Substance: ALLOPURINOL
  3. MOUNJARO [Concomitant]
     Active Substance: TIRZEPATIDE
  4. VITAMIN B12 [Concomitant]
     Active Substance: CYANOCOBALAMIN
  5. VITAMIN B3 [Concomitant]
     Active Substance: NIACIN
  6. AMLODIPINE [Concomitant]
     Active Substance: AMLODIPINE BESYLATE
  7. LISINOPRIL [Concomitant]
     Active Substance: LISINOPRIL
  8. METFORMIN [Concomitant]
     Active Substance: METFORMIN HYDROCHLORIDE

REACTIONS (2)
  - Blood glucose increased [Not Recovered/Not Resolved]
  - Poor quality sleep [Not Recovered/Not Resolved]

NARRATIVE: CASE EVENT DATE: 20250101
